FAERS Safety Report 23325187 (Version 1)
Quarter: 2023Q4

REPORT INFORMATION
  Report Type: Report from Study
  Country: CA (occurrence: None)
  Receive Date: 20231221
  Receipt Date: 20231221
  Transmission Date: 20240110
  Serious: Yes (Hospitalization, Other)
  Sender: FDA-Public Use
  Company Number: 2023A287943

PATIENT
  Age: 17580 Day
  Sex: Male

DRUGS (5)
  1. TEZSPIRE [Suspect]
     Active Substance: TEZEPELUMAB-EKKO
     Indication: Asthma
     Dosage: 210.0MG UNKNOWN
     Route: 058
     Dates: start: 20230816
  2. ANORO ELLIPTA [Concomitant]
     Active Substance: UMECLIDINIUM BROMIDE\VILANTEROL TRIFENATATE
     Dosage: 62.5MCG 1 INH DIE
  3. BREO ELLIPTA [Concomitant]
     Active Substance: FLUTICASONE FUROATE\VILANTEROL TRIFENATATE
     Dosage: 200MCG 1 INH DIE
  4. VENTOLIN [Concomitant]
     Active Substance: ALBUTEROL SULFATE
     Dosage: 100MCG 2 INH QID PRN
  5. PREDNISONE [Concomitant]
     Active Substance: PREDNISONE

REACTIONS (2)
  - Intestinal obstruction [Unknown]
  - Malaise [Unknown]

NARRATIVE: CASE EVENT DATE: 20231211
